FAERS Safety Report 6222880-X (Version None)
Quarter: 2009Q2

REPORT INFORMATION
  Report Type: 
  Country: None (occurrence: None)
  Receive Date: 20090611
  Receipt Date: 20090602
  Transmission Date: 20091009
  Serious: Yes (Hospitalization, Other)
  Sender: FDA-Public Use
  Company Number: GB-BRISTOL-MYERS SQUIBB COMPANY-14655344

PATIENT
  Age: 51 Year
  Sex: Male

DRUGS (5)
  1. METFORMIN HCL [Suspect]
     Indication: DIABETES MELLITUS
     Route: 048
     Dates: start: 20090325
  2. VILDAGLIPTIN [Suspect]
     Indication: DIABETES MELLITUS
     Route: 048
     Dates: start: 20090325
  3. ASPIRIN [Concomitant]
     Indication: ANTIPLATELET THERAPY
     Route: 048
  4. ATORVASTATIN CALCIUM [Concomitant]
     Indication: HYPOCHOLESTEROLAEMIA
     Route: 048
  5. GLIMEPIRIDE [Concomitant]
     Indication: DIABETES MELLITUS
     Route: 048
     Dates: start: 20090401

REACTIONS (2)
  - DRUG ADMINISTRATION ERROR [None]
  - HYPOGLYCAEMIA [None]
